FAERS Safety Report 17374538 (Version 1)
Quarter: 2020Q1

REPORT INFORMATION
  Report Type: Spontaneous
  Country: US (occurrence: US)
  Receive Date: 20200206
  Receipt Date: 20200206
  Transmission Date: 20200409
  Serious: Yes (Hospitalization)
  Sender: FDA-Public Use
  Company Number: NVSC2019US009475

PATIENT
  Age: 38 Year
  Sex: Male

DRUGS (1)
  1. RYDAPT [Suspect]
     Active Substance: MIDOSTAURIN
     Indication: ACUTE MYELOID LEUKAEMIA
     Dosage: 50 MG, TWICE A DAY ON DAYS 8 TO 21 OF EACH 28 DAY CYCLE
     Route: 048
     Dates: start: 201909

REACTIONS (3)
  - Sepsis [Not Recovered/Not Resolved]
  - Full blood count decreased [Recovered/Resolved with Sequelae]
  - Pyrexia [Recovered/Resolved with Sequelae]

NARRATIVE: CASE EVENT DATE: 20191004
